FAERS Safety Report 8868038 (Version 1)
Quarter: 2012Q4

REPORT INFORMATION
  Report Type: 
  Country: US (occurrence: US)
  Receive Date: 20121026
  Receipt Date: 20121026
  Transmission Date: 20130627
  Serious: No
  Sender: FDA-Public Use
  Company Number: US-AMGEN-USASP2012040440

PATIENT
  Age: 50 Year
  Sex: Female

DRUGS (2)
  1. ENBREL [Suspect]
     Indication: RHEUMATOID ARTHRITIS
     Dosage: 50 mg, qwk
     Dates: start: 20120622
  2. TREXALL [Concomitant]

REACTIONS (3)
  - Arthropod bite [Not Recovered/Not Resolved]
  - Sunburn [Recovered/Resolved]
  - Injection site pain [Recovered/Resolved]
